FAERS Safety Report 11863240 (Version 1)
Quarter: 2015Q4

REPORT INFORMATION
  Report Type: Report from Study
  Country: GB (occurrence: GB)
  Receive Date: 20151223
  Receipt Date: 20151223
  Transmission Date: 20160305
  Serious: Yes (Other)
  Sender: FDA-Public Use
  Company Number: GB-ROCHE-1683002

PATIENT
  Sex: Female

DRUGS (1)
  1. ROACTEMRA [Suspect]
     Active Substance: TOCILIZUMAB
     Indication: RHEUMATOID ARTHRITIS
     Route: 058
     Dates: start: 20141222

REACTIONS (6)
  - Cough [Unknown]
  - Drug dose omission [Unknown]
  - Malaise [Unknown]
  - Wheezing [Unknown]
  - Bronchitis [Unknown]
  - Asthenia [Unknown]
